FAERS Safety Report 20226628 (Version 2)
Quarter: 2022Q2

REPORT INFORMATION
  Report Type: Spontaneous
  Country: US (occurrence: US)
  Receive Date: 20211224
  Receipt Date: 20220425
  Transmission Date: 20220721
  Serious: Yes (Death, Other)
  Sender: FDA-Public Use
  Company Number: US-BRISTOL-MYERS SQUIBB COMPANY-BMS-2021-140457

PATIENT
  Age: 81 Year
  Sex: Male

DRUGS (13)
  1. ELIQUIS [Suspect]
     Active Substance: APIXABAN
     Indication: Product used for unknown indication
     Dosage: 5 MILLIGRAM, BID
     Route: 048
  2. VITAMIN E [Concomitant]
     Active Substance: .ALPHA.-TOCOPHEROL
  3. ERGOCALCIFEROL [Concomitant]
     Active Substance: ERGOCALCIFEROL
  4. FISH OIL [COD-LIVER OIL] [Concomitant]
  5. PROBIOTICS NOS [Concomitant]
     Active Substance: PROBIOTICS NOS
  6. TYLENOL [Concomitant]
     Active Substance: ACETAMINOPHEN
  7. ASPIRIN [Concomitant]
     Active Substance: ASPIRIN
  8. CREON [Concomitant]
     Active Substance: PANCRELIPASE AMYLASE\PANCRELIPASE LIPASE\PANCRELIPASE PROTEASE
  9. LISINOPRIL [Concomitant]
     Active Substance: LISINOPRIL
  10. TAMSULOSIN HYDROCHLORIDE [Concomitant]
     Active Substance: TAMSULOSIN HYDROCHLORIDE
  11. ATORVASTATIN [Concomitant]
     Active Substance: ATORVASTATIN
  12. VIAZEM [Concomitant]
  13. DICLOFENAC SODIUM [Concomitant]
     Active Substance: DICLOFENAC SODIUM

REACTIONS (1)
  - Death [Fatal]

NARRATIVE: CASE EVENT DATE: 20211211
